FAERS Safety Report 9701396 (Version 2)
Quarter: 2013Q4

REPORT INFORMATION
  Report Type: Spontaneous
  Country: US (occurrence: US)
  Receive Date: 20131121
  Receipt Date: 20131121
  Transmission Date: 20140711
  Serious: No
  Sender: FDA-Public Use
  Company Number: US-GILEAD-2008-0016710

PATIENT
  Age: 44 Year
  Sex: Female
  Weight: 56.7 kg

DRUGS (5)
  1. LETAIRIS [Suspect]
     Indication: PULMONARY HYPERTENSION
     Route: 048
     Dates: start: 20080415
  2. DIOVAN [Concomitant]
  3. SPIRIVA [Concomitant]
     Route: 055
  4. ASA LOW STR [Concomitant]
  5. ZYRTEC [Concomitant]

REACTIONS (4)
  - Chest pain [None]
  - Fatigue [None]
  - Palpitations [None]
  - Headache [None]
